FAERS Safety Report 6542834-3 (Version None)
Quarter: 2010Q1

REPORT INFORMATION
  Report Type: 
  Country: None (occurrence: None)
  Receive Date: 20100114
  Receipt Date: 20091228
  Transmission Date: 20100710
  Serious: Yes (Life-Threatening, Hospitalization)
  Sender: FDA-Public Use
  Company Number: 2009BM000357

PATIENT
  Age: 17 Year
  Sex: Female
  Weight: 24 kg

DRUGS (2)
  1. NAGLAZYME [Suspect]
     Indication: MUCOPOLYSACCHARIDOSIS VI
     Dosage: 25 MG;QW;IVPDRP
     Route: 042
     Dates: start: 20080201
  2. DIPHENHYDRAMINE (CON.) [Concomitant]

REACTIONS (2)
  - ATRIAL FIBRILLATION [None]
  - HEART RATE DECREASED [None]
